FAERS Safety Report 26031705 (Version 1)
Quarter: 2025Q4

REPORT INFORMATION
  Report Type: Report from Study
  Country: US (occurrence: US)
  Receive Date: 20251112
  Receipt Date: 20251112
  Transmission Date: 20260117
  Serious: Yes (Other)
  Sender: RECORDATI
  Company Number: US-RECORDATI RARE DISEASE INC.-2025007910

PATIENT

DRUGS (2)
  1. SUTIMLIMAB-JOME [Suspect]
     Active Substance: SUTIMLIMAB-JOME
     Indication: B-cell lymphoma
     Dosage: INITIAL DOSE
  2. SUTIMLIMAB-JOME [Suspect]
     Active Substance: SUTIMLIMAB-JOME
     Indication: Anaemia
     Dosage: SECOND DOSE

REACTIONS (2)
  - Cardiac arrest [Unknown]
  - Off label use [Recovered/Resolved]
